FAERS Safety Report 20549428 (Version 1)
Quarter: 2022Q1

REPORT INFORMATION
  Report Type: Spontaneous
  Country: US (occurrence: US)
  Receive Date: 20220303
  Receipt Date: 20220303
  Transmission Date: 20220423
  Serious: No
  Sender: FDA-Public Use
  Company Number: US-ALLERGAN-2123333US

PATIENT
  Age: 57 Year
  Sex: Female

DRUGS (13)
  1. RESTASIS [Suspect]
     Active Substance: CYCLOSPORINE
     Indication: Dry eye
     Dosage: 2 GTT, QAM
     Route: 047
     Dates: start: 202106
  2. OXYBUTYNIN [Concomitant]
     Active Substance: OXYBUTYNIN
     Indication: Multiple sclerosis
     Dosage: UNK
     Route: 048
  3. TIZANIDINE [Concomitant]
     Active Substance: TIZANIDINE
     Indication: Muscle spasms
     Dosage: THE LOWEST DOSE
  4. GABAPENTIN [Concomitant]
     Active Substance: GABAPENTIN
     Indication: Multiple sclerosis
     Dosage: TWO (100) MG TABLETS AT BEDTIME
     Route: 048
  5. UNSPECIFIED INGREDIENT [Concomitant]
     Active Substance: UNSPECIFIED INGREDIENT
     Indication: Nausea
     Dosage: UNK, PRN
  6. HYDROCODONE [Concomitant]
     Active Substance: HYDROCODONE
     Indication: Pain in extremity
     Dosage: UNK, PRN
  7. HYDROCODONE [Concomitant]
     Active Substance: HYDROCODONE
     Indication: Sleep disorder
  8. VUMERITY [Concomitant]
     Active Substance: DIROXIMEL FUMARATE
     Indication: Multiple sclerosis
     Dosage: 2 (231 MG) TABLETS IN THE MORNING AND 2 (231 MG) TABLETS IN THE EVENING
     Route: 048
     Dates: start: 202105
  9. PROMETHAZINE [Concomitant]
     Active Substance: PROMETHAZINE HYDROCHLORIDE
     Indication: Nausea
     Dosage: 25 MG ONCE PER MONTH OR ONCE EVERY OTHER MONTH
  10. VITAMIN D [Concomitant]
     Active Substance: VITAMIN D NOS
     Dosage: UNK
  11. VITAMIN B [Concomitant]
     Active Substance: VITAMIN B
     Dosage: UNK
  12. VITAMINS [Concomitant]
     Active Substance: VITAMINS
     Dosage: UNK
  13. SUMATRIPTAN [Concomitant]
     Active Substance: SUMATRIPTAN
     Indication: Migraine
     Dosage: 50 MG TABLET TAKEN AS NEEDED

REACTIONS (4)
  - Product use issue [Unknown]
  - Ocular hyperaemia [Recovering/Resolving]
  - Eye irritation [Recovering/Resolving]
  - Vision blurred [Recovered/Resolved]

NARRATIVE: CASE EVENT DATE: 20210601
